FAERS Safety Report 25981552 (Version 1)
Quarter: 2025Q4

REPORT INFORMATION
  Report Type: Spontaneous
  Country: AU (occurrence: AU)
  Receive Date: 20251030
  Receipt Date: 20251030
  Transmission Date: 20260118
  Serious: Yes (Other)
  Sender: BAUSCH AND LOMB
  Company Number: AU-MLMSERVICE-20251020-PI684449-00270-1

PATIENT
  Age: 42 Year
  Sex: Male

DRUGS (5)
  1. PREDNISOLONE [Suspect]
     Active Substance: PREDNISOLONE
     Indication: Sarcoidosis
     Dosage: HIGH DOSE
  2. PREDNISOLONE [Suspect]
     Active Substance: PREDNISOLONE
     Dosage: INCREASED
  3. TACROLIMUS [Concomitant]
     Active Substance: TACROLIMUS
     Indication: Nephrotic syndrome
     Dosage: TARGET TROUGH LEVEL 6-8 NG/ML
  4. TACROLIMUS [Concomitant]
     Active Substance: TACROLIMUS
     Dosage: TARGET TROUGH LEVEL 3-6 NG/ML
  5. RITUXIMAB [Concomitant]
     Active Substance: RITUXIMAB
     Indication: Glomerulonephritis membranous

REACTIONS (1)
  - Steroid diabetes [Unknown]
